FAERS Safety Report 9607702 (Version 3)
Quarter: 2013Q4

REPORT INFORMATION
  Report Type: Spontaneous
  Country: US (occurrence: US)
  Receive Date: 20131009
  Receipt Date: 20131125
  Transmission Date: 20140711
  Serious: Yes (Other)
  Sender: FDA-Public Use
  Company Number: US-JNJFOC-20131001462

PATIENT
  Sex: Male

DRUGS (2)
  1. REMICADE [Suspect]
     Indication: COLITIS
     Route: 042
     Dates: end: 2013
  2. ASACOL [Concomitant]
     Route: 065

REACTIONS (1)
  - Chest pain [Unknown]
